FAERS Safety Report 16351269 (Version 3)
Quarter: 2019Q3

REPORT INFORMATION
  Report Type: Spontaneous
  Country: RO (occurrence: RO)
  Receive Date: 20190524
  Receipt Date: 20190706
  Transmission Date: 20191004
  Serious: Yes (Hospitalization, Other)
  Sender: FDA-Public Use
  Company Number: RO-AUROBINDO-AUR-APL-2019-029479

PATIENT

DRUGS (2)
  1. METOPROLOL. [Suspect]
     Active Substance: METOPROLOL
     Dosage: 50 MILLIGRAM, ONCE A DAY
     Route: 065
  2. METOPROLOL. [Suspect]
     Active Substance: METOPROLOL
     Indication: CORONARY ARTERY DISEASE
     Dosage: 200 MILLIGRAM, DAILY
     Route: 065

REACTIONS (5)
  - Syncope [Recovered/Resolved]
  - Cardiac pacemaker insertion [Unknown]
  - Sinus node dysfunction [Recovered/Resolved]
  - Dizziness [Unknown]
  - Sinus arrest [Recovered/Resolved]
